FAERS Safety Report 13558177 (Version 2)
Quarter: 2017Q3

REPORT INFORMATION
  Report Type: Spontaneous
  Country: US (occurrence: US)
  Receive Date: 20170517
  Receipt Date: 20170707
  Transmission Date: 20171127
  Serious: Yes (Other)
  Sender: FDA-Public Use
  Company Number: US-BAUSCH-BL-2017-014614

PATIENT
  Age: 82 Year
  Sex: Male

DRUGS (3)
  1. FLUOROURACIL 5% [Suspect]
     Active Substance: FLUOROURACIL
     Indication: SKIN CANCER
     Route: 061
     Dates: start: 20160125, end: 20160202
  2. NUM-ZIT (BENZOCAINE) [Suspect]
     Active Substance: BENZOCAINE
     Indication: PAIN
     Route: 065
  3. NUM-ZIT (BENZOCAINE) [Suspect]
     Active Substance: BENZOCAINE
     Indication: ORAL DISCOMFORT

REACTIONS (2)
  - Oral candidiasis [Unknown]
  - Drug ineffective [Unknown]

NARRATIVE: CASE EVENT DATE: 201602
